FAERS Safety Report 5507277-X (Version None)
Quarter: 2007Q4

REPORT INFORMATION
  Report Type: 
  Country: None (occurrence: None)
  Receive Date: 20071025
  Receipt Date: 20071018
  Transmission Date: 20080405
  Serious: Yes (Hospitalization)
  Sender: FDA-Public Use
  Company Number: WSDF_00655

PATIENT
  Age: 14 Year
  Sex: Female

DRUGS (2)
  1. WINRHO SDF [Suspect]
     Indication: IDIOPATHIC THROMBOCYTOPENIC PURPURA
     Dosage: 250 IU/KG ONCE IV
     Route: 042
     Dates: start: 20070627, end: 20070627
  2. TRANEXAMIC ACID [Concomitant]

REACTIONS (5)
  - CONTUSION [None]
  - DIZZINESS [None]
  - HEADACHE [None]
  - MENORRHAGIA [None]
  - SYNCOPE [None]
